FAERS Safety Report 7390319-7 (Version None)
Quarter: 2011Q2

REPORT INFORMATION
  Report Type: 
  Country: None (occurrence: None)
  Receive Date: 20110401
  Receipt Date: 20110318
  Transmission Date: 20111010
  Serious: Yes (Other)
  Sender: FDA-Public Use
  Company Number: AU-GENENTECH-315694

PATIENT

DRUGS (2)
  1. RITUXIMAB [Suspect]
     Indication: PRODUCT USED FOR UNKNOWN INDICATION
     Dosage: 2 G, 1/MONTH
     Route: 042
  2. IMMUNE GLOBULIN IV NOS [Suspect]
     Indication: PRODUCT USED FOR UNKNOWN INDICATION
     Dosage: 2000 MG, 1/MONTH
     Route: 042

REACTIONS (1)
  - CORONARY ARTERY THROMBOSIS [None]
